FAERS Safety Report 10013994 (Version 1)
Quarter: 2014Q1

REPORT INFORMATION
  Report Type: Spontaneous
  Country: GB (occurrence: GB)
  Receive Date: 20140317
  Receipt Date: 20140317
  Transmission Date: 20141002
  Serious: Yes (Life-Threatening, Hospitalization)
  Sender: FDA-Public Use
  Company Number: GB-JNJFOC-20140303764

PATIENT
  Age: 47 Year
  Sex: Female

DRUGS (9)
  1. NORETHISTERONE [Suspect]
     Indication: VAGINAL HAEMORRHAGE
     Route: 065
     Dates: start: 201401, end: 201401
  2. LACTULOSE [Concomitant]
     Route: 065
  3. CHOLESTYRAMINE [Concomitant]
     Route: 065
  4. FUROSEMIDE [Concomitant]
     Route: 065
  5. URSODEOXYCHOLIC ACID [Concomitant]
     Route: 065
  6. MIRTAZAPINE [Concomitant]
     Route: 065
  7. RIFAMPICIN [Concomitant]
     Route: 065
  8. SPIROLACTONE [Concomitant]
     Route: 065
  9. ADCAL-D3 [Concomitant]
     Route: 065

REACTIONS (4)
  - Hepatic cirrhosis [Not Recovered/Not Resolved]
  - Ascites [Unknown]
  - Coagulopathy [Unknown]
  - Encephalopathy [Unknown]
